FAERS Safety Report 16836736 (Version 2)
Quarter: 2019Q4

REPORT INFORMATION
  Report Type: Report from Study
  Country: US (occurrence: US)
  Receive Date: 20190922
  Receipt Date: 20191210
  Transmission Date: 20200122
  Serious: Yes (Other)
  Sender: FDA-Public Use
  Company Number: US-EXELIXIS-XL18419023747

PATIENT
  Age: 65 Year
  Sex: Male
  Weight: 62 kg

DRUGS (2)
  1. BLINDED PLACEBO [Suspect]
     Active Substance: INVESTIGATIONAL PRODUCT
     Indication: CARCINOID TUMOUR
     Dosage: 60 MG, QD
     Route: 048
     Dates: start: 20190808
  2. BLINDED XL184 [Suspect]
     Active Substance: CABOZANTINIB
     Indication: CARCINOID TUMOUR
     Dosage: 60 MG, QD
     Route: 048
     Dates: start: 20190808

REACTIONS (1)
  - Blood bilirubin increased [Not Recovered/Not Resolved]

NARRATIVE: CASE EVENT DATE: 20190821
